FAERS Safety Report 6168313-3 (Version None)
Quarter: 2009Q2

REPORT INFORMATION
  Report Type: 
  Country: None (occurrence: None)
  Receive Date: 20090427
  Receipt Date: 20090427
  Transmission Date: 20091009
  Serious: Yes (Other)
  Sender: FDA-Public Use
  Company Number: US-PFIZER INC-2008007971

PATIENT
  Sex: Female
  Weight: 120.45 kg

DRUGS (17)
  1. LYRICA [Suspect]
     Indication: FIBROMYALGIA
     Dosage: 75 MG, 3X/DAY
     Route: 048
     Dates: start: 20070101, end: 20081225
  2. ADVAIR HFA [Concomitant]
     Indication: CHRONIC OBSTRUCTIVE PULMONARY DISEASE
  3. PROAIR HFA [Concomitant]
     Indication: CHRONIC OBSTRUCTIVE PULMONARY DISEASE
  4. MONTELUKAST SODIUM [Concomitant]
     Indication: CHRONIC OBSTRUCTIVE PULMONARY DISEASE
  5. DEPAKOTE [Concomitant]
     Indication: MANIA
  6. SEROQUEL [Concomitant]
  7. CYMBALTA [Concomitant]
     Indication: ANXIETY
  8. XANAX [Concomitant]
     Indication: ANXIETY
  9. NEXIUM [Concomitant]
  10. LISINOPRIL [Concomitant]
     Indication: HYPERTENSION
  11. LASIX [Concomitant]
     Indication: CARDIAC DISORDER
  12. LOPID [Concomitant]
     Indication: BLOOD CHOLESTEROL INCREASED
  13. SYNTHROID [Concomitant]
     Indication: THYROID DISORDER
  14. THEO-24 [Concomitant]
  15. PROMETHAZINE [Concomitant]
  16. VICOPROFEN [Concomitant]
  17. EPIPEN [Concomitant]

REACTIONS (12)
  - APHONIA [None]
  - CANDIDIASIS [None]
  - DIZZINESS [None]
  - DRUG INEFFECTIVE [None]
  - HEADACHE [None]
  - HUNGER [None]
  - HYPOAESTHESIA [None]
  - INSOMNIA [None]
  - MOBILITY DECREASED [None]
  - PHARYNGEAL OEDEMA [None]
  - PHARYNGITIS STREPTOCOCCAL [None]
  - TONSILLAR DISORDER [None]
